FAERS Safety Report 10417822 (Version 3)
Quarter: 2014Q3

REPORT INFORMATION
  Report Type: Spontaneous
  Country: FR (occurrence: FR)
  Receive Date: 20140829
  Receipt Date: 20140910
  Transmission Date: 20150326
  Serious: Yes (Other)
  Sender: FDA-Public Use
  Company Number: FR-TEVA-504036ISR

PATIENT
  Age: 73 Year
  Sex: Male

DRUGS (1)
  1. AMLODIPINE RATIO 10 MG [Suspect]
     Active Substance: AMLODIPINE BESYLATE
     Dosage: LONG-STANDING TREATMENT

REACTIONS (6)
  - Drug ineffective [Unknown]
  - Diarrhoea haemorrhagic [Recovered/Resolved]
  - Malaise [Recovered/Resolved]
  - Respiratory disorder [Recovered/Resolved]
  - Product substitution issue [Recovered/Resolved]
  - Reaction to drug excipients [Recovered/Resolved]

NARRATIVE: CASE EVENT DATE: 20140818
